FAERS Safety Report 9835005 (Version 2)
Quarter: 2014Q1

REPORT INFORMATION
  Report Type: Spontaneous
  Country: CH (occurrence: CH)
  Receive Date: 20140122
  Receipt Date: 20140122
  Transmission Date: 20141002
  Serious: Yes (Other)
  Sender: FDA-Public Use
  Company Number: CH-PFIZER INC-2012193079

PATIENT
  Age: 30 Year
  Sex: Female

DRUGS (3)
  1. XANAX [Suspect]
     Indication: SLEEP DISORDER
     Dosage: 0.5 MG, 1X/DAY
     Dates: end: 20120415
  2. EFEXOR ER [Suspect]
     Indication: DEPRESSION
     Dosage: 150 MG, 1X/DAY
     Dates: end: 20120415
  3. VALVERDE [Suspect]
     Indication: SLEEP DISORDER
     Dosage: UNK
     Dates: end: 20120415

REACTIONS (3)
  - Foetal death [Unknown]
  - Abortion [None]
  - Exposure during pregnancy [None]
